FAERS Safety Report 9340787 (Version 2)
Quarter: 2013Q3

REPORT INFORMATION
  Report Type: Spontaneous
  Country: US (occurrence: US)
  Receive Date: 20130610
  Receipt Date: 20130712
  Transmission Date: 20140515
  Serious: Yes (Other)
  Sender: FDA-Public Use
  Company Number: US-JHP PHARMACEUTICALS, LLC-JHP201300341

PATIENT
  Age: 73 Year
  Sex: Male

DRUGS (5)
  1. KETALAR [Suspect]
     Indication: SEDATIVE THERAPY
     Dosage: 80 MG, TOTAL
  2. FENTANYL [Suspect]
     Indication: SEDATION
     Dosage: 240 ?G, UNK
  3. SUCCINYLCHOLINE [Suspect]
     Indication: SEDATION
     Dosage: 160 MG, UNK
  4. MIDAZOLAM [Suspect]
     Indication: SEDATION
     Dosage: 2.5 MG, UNK
  5. LIDOCAINE [Suspect]
     Dosage: 120 MG, UNK

REACTIONS (3)
  - Cardiac arrest [Unknown]
  - Bradycardia [Unknown]
  - Hypotension [Unknown]
